FAERS Safety Report 7553106-2 (Version None)
Quarter: 2011Q2

REPORT INFORMATION
  Report Type: 
  Country: None (occurrence: None)
  Receive Date: 20110616
  Receipt Date: 20091120
  Transmission Date: 20111010
  Serious: Yes (Death, Hospitalization, Other)
  Sender: FDA-Public Use
  Company Number: US-BAYER-200940999NA

PATIENT
  Age: 78 Year
  Sex: Male
  Weight: 94 kg

DRUGS (13)
  1. RED BLOOD CELLS [Concomitant]
     Dosage: 2 UNITS
     Dates: start: 20050707
  2. LASIX [Concomitant]
     Dosage: UNK
     Dates: start: 20030101
  3. ACETYLSALICYLIC ACID SRT [Concomitant]
     Dosage: UNK
     Dates: start: 20050101
  4. TRASYLOL [Suspect]
     Indication: CORONARY ARTERY BYPASS
     Dosage: 100 ML BOLUS; APPEARS TO BE 100ML INFUSION
     Route: 042
     Dates: start: 20050707, end: 20050707
  5. ALTACE [Concomitant]
     Dosage: UNK
     Dates: start: 20050101
  6. ZOCOR [Concomitant]
     Dosage: UNK
     Dates: start: 20050101
  7. DIGOXIN [Concomitant]
     Dosage: .125 MG/DAILY
  8. NITROGLYCERIN [Concomitant]
     Dosage: 1:150 GR EVERY 5 MINUTES X3 AS NEEDED FOR CHEST PAIN
  9. HEPARIN [Concomitant]
     Dosage: 280 MG
     Route: 042
     Dates: start: 20050707
  10. CLONIDINE [Concomitant]
     Dosage: UNK
     Dates: start: 20050101
  11. PROTAMINE SULFATE [Concomitant]
     Dosage: 250 MG
     Route: 042
     Dates: start: 20050707
  12. LIPITOR [Concomitant]
     Dosage: 10 MG/ DAILY
     Route: 048
  13. PLASMA [Concomitant]
     Dosage: 2 UNITS
     Dates: start: 20050707

REACTIONS (9)
  - RENAL FAILURE [None]
  - ANHEDONIA [None]
  - DEPRESSION [None]
  - INJURY [None]
  - PAIN [None]
  - FEAR [None]
  - ANXIETY [None]
  - DEATH [None]
  - UNEVALUABLE EVENT [None]
